FAERS Safety Report 6165624-2 (Version None)
Quarter: 2009Q2

REPORT INFORMATION
  Report Type: 
  Country: None (occurrence: None)
  Receive Date: 20090423
  Receipt Date: 20090414
  Transmission Date: 20091009
  Serious: Yes (Hospitalization)
  Sender: FDA-Public Use
  Company Number: BR-ABBOTT-09P-020-0568071-00

PATIENT
  Sex: Female

DRUGS (3)
  1. HUMIRA [Suspect]
     Indication: RHEUMATOID ARTHRITIS
     Route: 058
     Dates: start: 20080903, end: 20081201
  2. ARAVA [Concomitant]
     Indication: DRUG USE FOR UNKNOWN INDICATION
     Dates: end: 20081201
  3. ISONIAZID [Concomitant]
     Indication: TUBERCULIN TEST POSITIVE

REACTIONS (4)
  - ANOREXIA [None]
  - HERPES VIRUS INFECTION [None]
  - PNEUMONIA [None]
  - PYREXIA [None]
